FAERS Safety Report 4881858-9 (Version None)
Quarter: 2006Q1

REPORT INFORMATION
  Report Type: 
  Country: None (occurrence: None)
  Receive Date: 20060112
  Receipt Date: 20060112
  Transmission Date: 20060701
  Serious: Yes (Death)
  Sender: FDA-Public Use
  Company Number: None

PATIENT
  Sex: Male
  Weight: 81.6475 kg

DRUGS (1)
  1. ZOLOFT [Suspect]
     Indication: ANXIETY
     Dosage: 50 MG ONE TABLET DAILY PO
     Route: 048
     Dates: start: 20050823, end: 20050827

REACTIONS (3)
  - COMPLETED SUICIDE [None]
  - INTENTIONAL SELF-INJURY [None]
  - LACERATION [None]
